FAERS Safety Report 4515746-4 (Version None)
Quarter: 2004Q4

REPORT INFORMATION
  Report Type: 
  Country: None (occurrence: None)
  Receive Date: 20041122
  Receipt Date: 20041116
  Transmission Date: 20050328
  Serious: No
  Sender: FDA-Public Use
  Company Number: ZLBIGIV/04/22/USA

PATIENT
  Age: 66 Year
  Sex: Male
  Weight: 102.0593 kg

DRUGS (14)
  1. CARIMUNE [Suspect]
     Indication: CHRONIC INFLAMMATORY DEMYELINATING POLYRADICULONEUROPATHY
     Dosage: 99 G, EVERY THREE WEEKS, IV
     Route: 042
     Dates: start: 20040316, end: 20040427
  2. CARIMUNE [Suspect]
     Indication: CHRONIC INFLAMMATORY DEMYELINATING POLYRADICULONEUROPATHY
     Dosage: 99 G, EVERY THREE WEEKS, IV
     Route: 042
     Dates: start: 20040527, end: 20040527
  3. CARIMUNE [Suspect]
  4. CARIMUNE [Suspect]
  5. NEURONTIN [Concomitant]
  6. GEMFIBROZIL [Concomitant]
  7. CELEBREX [Concomitant]
  8. ALLOPURINOL [Concomitant]
  9. PLETAL [Concomitant]
  10. ATENOLOL [Concomitant]
  11. FUROSEMIDE [Concomitant]
  12. ASPIRIN [Concomitant]
  13. AVAPRO [Concomitant]
  14. TRILEPTAL [Concomitant]

REACTIONS (8)
  - DERMATITIS EXFOLIATIVE [None]
  - DRY SKIN [None]
  - HAEMORRHAGE [None]
  - PAIN IN EXTREMITY [None]
  - PSORIASIS [None]
  - RASH GENERALISED [None]
  - RASH PRURITIC [None]
  - SKIN FISSURES [None]
